FAERS Safety Report 13078874 (Version 1)
Quarter: 2017Q1

REPORT INFORMATION
  Report Type: Spontaneous
  Country: HU (occurrence: HU)
  Receive Date: 20170102
  Receipt Date: 20170102
  Transmission Date: 20170428
  Serious: Yes (Life-Threatening)
  Sender: FDA-Public Use
  Company Number: HU-AMGEN-HUNSP2016184172

PATIENT
  Sex: Female

DRUGS (21)
  1. CITROKALCIUM [Concomitant]
     Indication: OSTEOPOROSIS PROPHYLAXIS
     Dosage: 200 MG, TID
  2. FRONTIN [Concomitant]
     Active Substance: ALPRAZOLAM
     Indication: SLEEP DISORDER
     Dosage: 0.25 MG, TID
  3. NOOTROPIL [Concomitant]
     Active Substance: PIRACETAM
     Indication: INFARCTION
     Dosage: 1200 MG, BID
  4. THIOGAMMA [Concomitant]
     Active Substance: THIOCTIC ACID
     Indication: DRUG TOXICITY PROPHYLAXIS
     Route: 048
  5. VOLTAREN [Concomitant]
     Active Substance: DICLOFENAC SODIUM
     Dosage: 75 MG DICLOFENAC AS 3ML SOLUTION FOR INJECTION)
  6. IRINOTECAN [Suspect]
     Active Substance: IRINOTECAN
     Indication: COLON CANCER
     Dosage: 300 MG, UNK
     Route: 042
     Dates: start: 20160715, end: 20160715
  7. KALDYUM [Concomitant]
     Active Substance: POTASSIUM CHLORIDE
     Indication: BLOOD POTASSIUM DECREASED
     Dosage: 600 MG, UNK (MIDDAY: 2 CAPSULES, EVENING: 1 CAPSULE)
  8. CALCIUM FOLINATE [Suspect]
     Active Substance: LEUCOVORIN CALCIUM
     Indication: COLON CANCER
     Dosage: 340 MG, Q2WK
     Route: 042
     Dates: start: 20160715
  9. METFOGAMMA [Concomitant]
     Active Substance: METFORMIN HYDROCHLORIDE
     Indication: DIABETES MELLITUS
     Dosage: 425 MG, BID
  10. CONTRAMAL [Concomitant]
     Active Substance: TRAMADOL HYDROCHLORIDE
     Dosage: 100 MG, UNK
  11. VECTIBIX [Suspect]
     Active Substance: PANITUMUMAB
     Indication: COLON CANCER
     Dosage: 400 MG, UNK
     Route: 042
     Dates: start: 20160715, end: 20160715
  12. FLUOROURACIL. [Suspect]
     Active Substance: FLUOROURACIL
     Indication: COLON CANCER
     Dosage: 680 MG, Q2WK, OVER 22 H
     Route: 040
     Dates: start: 20160715
  13. FLUOROURACIL. [Suspect]
     Active Substance: FLUOROURACIL
     Dosage: 1020 MG, Q2WK (OVER 22 H)
     Route: 041
     Dates: start: 20160715
  14. CLEXANE [Concomitant]
     Active Substance: ENOXAPARIN SODIUM
     Indication: CEREBROVASCULAR ACCIDENT PROPHYLAXIS
  15. VITAMIN D3 [Concomitant]
     Active Substance: CHOLECALCIFEROL
     Indication: OSTEOPOROSIS PROPHYLAXIS
     Dosage: 3000 IU, QD
  16. CLEXANE [Concomitant]
     Active Substance: ENOXAPARIN SODIUM
     Indication: THROMBOSIS PROPHYLAXIS
     Dosage: UNK
  17. TWYNSTA [Concomitant]
     Active Substance: AMLODIPINE BESYLATE\TELMISARTAN
     Indication: HYPERTENSION
     Dosage: 0.25 DF, QD (1DF = 40MG TELMISARTAN + 10MG AMLODIPINE)
  18. AMILOZID [Concomitant]
     Indication: HYPERTENSION
     Dosage: 1 DF, QD (1DF = 5MG AMILORIDE + 50MG HYDROCHLOROTHIAZIDE)
  19. BENFOGAMMA [Concomitant]
     Indication: CHEMOTHERAPY TOXICITY ATTENUATION
     Dosage: 3 DF, QD
  20. THIOGAMMA [Concomitant]
     Active Substance: THIOCTIC ACID
     Indication: PROPHYLAXIS
  21. ZALDIAR [Concomitant]
     Active Substance: ACETAMINOPHEN\TRAMADOL HYDROCHLORIDE
     Dosage: UNK, (37.5MG TRAMADOL + 325MG PARACETAMOL EFFERVESCENT TABLETS)

REACTIONS (4)
  - Leukopenia [Recovered/Resolved]
  - Skin lesion [Recovered/Resolved]
  - Granulocytopenia [Recovered/Resolved]
  - Aphthous ulcer [Recovered/Resolved]
